FAERS Safety Report 7046688-0 (Version None)
Quarter: 2010Q4

REPORT INFORMATION
  Report Type: 
  Country: None (occurrence: None)
  Receive Date: 20101015
  Receipt Date: 20101006
  Transmission Date: 20110411
  Serious: No
  Sender: FDA-Public Use
  Company Number: 2008BI010836

PATIENT
  Age: 41 Year
  Sex: Female

DRUGS (1)
  1. TYSABRI [Suspect]
     Indication: MULTIPLE SCLEROSIS
     Route: 042
     Dates: start: 20080125

REACTIONS (23)
  - APHASIA [None]
  - ASTHENIA [None]
  - AXILLARY PAIN [None]
  - BACK PAIN [None]
  - BREAST PAIN [None]
  - CYSTITIS [None]
  - DIZZINESS [None]
  - FATIGUE [None]
  - FEELING DRUNK [None]
  - HEADACHE [None]
  - HYPOAESTHESIA [None]
  - MENTAL IMPAIRMENT [None]
  - MOBILITY DECREASED [None]
  - MUSCLE SPASMS [None]
  - MYALGIA [None]
  - PAIN [None]
  - PAIN IN EXTREMITY [None]
  - SENSATION OF HEAVINESS [None]
  - SOMNOLENCE [None]
  - STRESS [None]
  - URINARY INCONTINENCE [None]
  - URINARY RETENTION [None]
  - VISUAL IMPAIRMENT [None]
